FAERS Safety Report 5460432-X (Version None)
Quarter: 2007Q3

REPORT INFORMATION
  Report Type: 
  Country: None (occurrence: None)
  Receive Date: 20070919
  Receipt Date: 20070801
  Transmission Date: 20080115
  Serious: No
  Sender: FDA-Public Use
  Company Number: US-ASTRAZENECA-2007UW16014

PATIENT
  Age: 25 Year
  Sex: Male
  Weight: 86.4 kg

DRUGS (8)
  1. SEROQUEL [Suspect]
     Indication: AGITATION
     Route: 048
     Dates: start: 20061001
  2. SEROQUEL [Suspect]
     Indication: PSYCHOMOTOR HYPERACTIVITY
     Route: 048
     Dates: start: 20061001
  3. SEROQUEL [Suspect]
     Dosage: 25 MG BID PRN
     Route: 048
  4. SEROQUEL [Suspect]
     Dosage: 25 MG BID PRN
     Route: 048
  5. DEPAKOTE [Concomitant]
  6. ABILIFY [Concomitant]
  7. RISPERDAL [Concomitant]
  8. LEXAPRO [Concomitant]

REACTIONS (5)
  - BRADYCARDIA [None]
  - DYSARTHRIA [None]
  - SEDATION [None]
  - SLUGGISHNESS [None]
  - WEIGHT INCREASED [None]
